FAERS Safety Report 8991207 (Version 2)
Quarter: 2013Q1

REPORT INFORMATION
  Report Type: Spontaneous
  Country: US (occurrence: US)
  Receive Date: 20121231
  Receipt Date: 20130304
  Transmission Date: 20140127
  Serious: Yes (Hospitalization, Other)
  Sender: FDA-Public Use
  Company Number: PHEH2012US025430

PATIENT
  Age: 61 Year
  Sex: Male
  Weight: 108.39 kg

DRUGS (13)
  1. RECLAST [Suspect]
     Indication: OSTEOPOROSIS
     Dosage: 5 MG, YEARLY
     Route: 042
     Dates: start: 20121127
  2. ENBREL [Concomitant]
     Indication: RHEUMATOID ARTHRITIS
     Dosage: 50 MG, WEEKLY
     Route: 058
     Dates: start: 20080228, end: 20121129
  3. METOPROLOL [Concomitant]
     Indication: HYPERTENSION
     Dosage: 75 MG, BID
     Route: 048
  4. WARFARIN [Concomitant]
     Indication: PULMONARY EMBOLISM
     Dosage: UNK UKN, UNK
  5. SPIRIVA [Concomitant]
     Dosage: UNK UKN, UNK
  6. STALEVO [Concomitant]
     Dosage: UNK UKN, UNK
  7. CLONAZEPAM [Concomitant]
     Dosage: UNK UKN, UNK
  8. AZILECT [Concomitant]
     Dosage: UNK UKN, UNK
  9. ASA [Concomitant]
     Dosage: UNK UKN, UNK
  10. VENTOLIN HFA [Concomitant]
     Dosage: UNK UKN, UNK
  11. WARFARIN SODIUM [Concomitant]
  12. FENOFIBRATE [Concomitant]
  13. ASPIRIN [Concomitant]

REACTIONS (14)
  - Confusional state [Recovering/Resolving]
  - Urine sodium abnormal [Recovered/Resolved]
  - Sepsis [Unknown]
  - Renal failure acute [Unknown]
  - Blood creatine increased [Recovered/Resolved]
  - Insomnia [Recovering/Resolving]
  - Pyrexia [Recovered/Resolved]
  - Chills [Recovered/Resolved]
  - Hyperhidrosis [Recovered/Resolved]
  - Blood pressure decreased [Recovered/Resolved]
  - Malaise [Recovered/Resolved]
  - Cough [Recovered/Resolved]
  - Myalgia [Recovered/Resolved]
  - Arthralgia [Recovered/Resolved]
